FAERS Safety Report 6816243-3 (Version None)
Quarter: 2010Q3

REPORT INFORMATION
  Report Type: 
  Country: None (occurrence: None)
  Receive Date: 20100702
  Receipt Date: 20100702
  Transmission Date: 20110219
  Serious: Yes (Hospitalization)
  Sender: FDA-Public Use
  Company Number: None

PATIENT
  Age: 60 Year
  Sex: Male
  Weight: 63.05 kg

DRUGS (12)
  1. LEVAQUIN [Suspect]
     Dosage: LEVAQUIN 750MG IV ^RECENTLY STARTED^
     Route: 042
  2. NEURONTIN [Suspect]
     Dosage: NEURONTIN ? PO
     Route: 048
  3. NORCO [Concomitant]
  4. POTASSIUM CHLORIDE [Concomitant]
  5. LASIX [Concomitant]
  6. NEXIUM [Concomitant]
  7. ALDACTONE [Concomitant]
  8. MULTI-VITAMIN [Concomitant]
  9. VITAMIN C [Concomitant]
  10. COREG [Concomitant]
  11. ZOCR [Concomitant]
  12. TRAZODONE HYDROCHLORIDE [Concomitant]

REACTIONS (4)
  - ALTERED STATE OF CONSCIOUSNESS [None]
  - HYPOGLYCAEMIA [None]
  - MENTAL STATUS CHANGES [None]
  - SHOCK [None]
